FAERS Safety Report 6232457-8 (Version None)
Quarter: 2009Q2

REPORT INFORMATION
  Report Type: 
  Country: None (occurrence: None)
  Receive Date: 20090617
  Receipt Date: 20090612
  Transmission Date: 20091009
  Serious: Yes (Death)
  Sender: FDA-Public Use
  Company Number: JP-ROCHE-635512

PATIENT
  Age: 27 Year
  Sex: Female

DRUGS (1)
  1. TAMIFLU [Suspect]
     Indication: INFLUENZA
     Dosage: DRUG: TAMIFLU CAPSULE.
     Route: 048
     Dates: start: 20090102, end: 20090106

REACTIONS (1)
  - COMPLETED SUICIDE [None]
